FAERS Safety Report 7198661-X (Version None)
Quarter: 2010Q4

REPORT INFORMATION
  Report Type: 
  Country: None (occurrence: None)
  Receive Date: 20101227
  Receipt Date: 20101215
  Transmission Date: 20110411
  Serious: Yes (Hospitalization)
  Sender: FDA-Public Use
  Company Number: JP-ASTRAZENECA-2010SE59914

PATIENT
  Age: 51 Year
  Sex: Male
  Weight: 75 kg

DRUGS (2)
  1. ECARD COMBINATION HD [Suspect]
     Indication: HYPERTENSION
     Route: 048
     Dates: start: 20091121, end: 20091202
  2. SPLENDIL [Concomitant]
     Indication: HYPERTENSION
     Route: 048
     Dates: start: 20091121, end: 20091202

REACTIONS (1)
  - TRANSIENT ISCHAEMIC ATTACK [None]
